FAERS Safety Report 25830706 (Version 1)
Quarter: 2025Q3

REPORT INFORMATION
  Report Type: Spontaneous
  Country: EU (occurrence: EU)
  Receive Date: 20250922
  Receipt Date: 20250922
  Transmission Date: 20251020
  Serious: Yes (Other)
  Sender: TAKEDA
  Company Number: None

PATIENT
  Age: 43 Year
  Sex: Female
  Weight: 57.1 kg

DRUGS (5)
  1. LISDEXAMFETAMINE DIMESYLATE [Suspect]
     Active Substance: LISDEXAMFETAMINE DIMESYLATE
     Indication: Attention deficit hyperactivity disorder
     Dates: start: 20250816, end: 20250824
  2. Ponstan 250 mg Capsules [Concomitant]
     Indication: Dysmenorrhoea
  3. AMOXICILLIN [Concomitant]
     Active Substance: AMOXICILLIN
     Indication: Sinusitis
     Dates: start: 20250515, end: 20250522
  4. AMOXICILLIN [Concomitant]
     Active Substance: AMOXICILLIN
     Dates: start: 202506, end: 202506
  5. MIRENA [Concomitant]
     Active Substance: LEVONORGESTREL

REACTIONS (9)
  - Chest discomfort [Unknown]
  - Anxiety [Unknown]
  - Crying [Unknown]
  - Emotional disorder [Unknown]
  - Back pain [Unknown]
  - Musculoskeletal stiffness [Unknown]
  - Chest pain [Unknown]
  - Oesophageal pain [Unknown]
  - Product prescribing error [Unknown]

NARRATIVE: CASE EVENT DATE: 20250816
